FAERS Safety Report 22360366 (Version 1)
Quarter: 2023Q2

REPORT INFORMATION
  Report Type: Spontaneous
  Country: US (occurrence: US)
  Receive Date: 20230524
  Receipt Date: 20230524
  Transmission Date: 20230721
  Serious: No
  Sender: FDA-Public Use
  Company Number: US-UCBSA-2022022239

PATIENT
  Sex: Female
  Weight: 97.069 kg

DRUGS (1)
  1. CIMZIA [Suspect]
     Active Substance: CERTOLIZUMAB PEGOL
     Indication: Spondyloarthropathy
     Dosage: 200 MILLIGRAM PER MILLILITRE, EV 4 WEEKS
     Route: 058
     Dates: start: 20211019

REACTIONS (2)
  - Gastritis [Unknown]
  - Off label use [Unknown]
